FAERS Safety Report 4931927-X (Version None)
Quarter: 2006Q1

REPORT INFORMATION
  Report Type: 
  Country: None (occurrence: None)
  Receive Date: 20060303
  Receipt Date: 20050321
  Transmission Date: 20060701
  Serious: Yes (Hospitalization, Disabling, Other)
  Sender: FDA-Public Use
  Company Number: US-MERCK-0503USA03953

PATIENT
  Age: 38 Year
  Sex: Female
  Weight: 55 kg

DRUGS (2)
  1. VIOXX [Suspect]
     Indication: ARTHRALGIA
     Route: 048
     Dates: start: 20000101, end: 20010101
  2. VIOXX [Suspect]
     Indication: MUSCLE SPASMS
     Route: 048
     Dates: start: 20000101, end: 20010101

REACTIONS (8)
  - CEREBROVASCULAR ACCIDENT [None]
  - EMOTIONAL DISTRESS [None]
  - MAJOR DEPRESSION [None]
  - MIGRAINE [None]
  - MITRAL VALVE PROLAPSE [None]
  - PNEUMONIA ASPIRATION [None]
  - TEMPORAL LOBE EPILEPSY [None]
  - TRANSIENT ISCHAEMIC ATTACK [None]
